FAERS Safety Report 5585594-5 (Version None)
Quarter: 2008Q1

REPORT INFORMATION
  Report Type: 
  Country: None (occurrence: None)
  Receive Date: 20080109
  Receipt Date: 20080104
  Transmission Date: 20080703
  Serious: Yes (Hospitalization)
  Sender: FDA-Public Use
  Company Number: B0501893A

PATIENT
  Age: 89 Year
  Sex: Female

DRUGS (4)
  1. VALACYCLOVIR HCL [Suspect]
     Indication: HERPES ZOSTER
     Dosage: 1G THREE TIMES PER DAY
     Route: 048
     Dates: start: 20071219, end: 20071223
  2. ENALAPRIL [Concomitant]
  3. ZOVIRAX [Concomitant]
  4. TOBRAMYCIN [Concomitant]

REACTIONS (6)
  - ANURIA [None]
  - CONFUSIONAL STATE [None]
  - DEHYDRATION [None]
  - FATIGUE [None]
  - MALAISE [None]
  - RENAL FAILURE ACUTE [None]
